FAERS Safety Report 13547750 (Version 2)
Quarter: 2018Q4

REPORT INFORMATION
  Report Type: Report from Study
  Country: FR (occurrence: FR)
  Receive Date: 20170516
  Receipt Date: 20181206
  Transmission Date: 20190204
  Serious: Yes (Death, Other)
  Sender: FDA-Public Use
  Company Number: FR-ROCHE-1766235

PATIENT

DRUGS (2)
  1. RITUXIMAB. [Suspect]
     Active Substance: RITUXIMAB
     Indication: AUTOIMMUNE HAEMOLYTIC ANAEMIA
     Route: 042
  2. RITUXIMAB. [Suspect]
     Active Substance: RITUXIMAB
     Indication: EVANS SYNDROME

REACTIONS (6)
  - Neutropenia [Fatal]
  - Pneumonitis [Fatal]
  - Off label use [Fatal]
  - Pseudomonal sepsis [Fatal]
  - Agranulocytosis [Unknown]
  - Intentional product use issue [Fatal]
